FAERS Safety Report 8243503-4 (Version None)
Quarter: 2012Q1

REPORT INFORMATION
  Report Type: 
  Country: None (occurrence: None)
  Receive Date: 20120329
  Receipt Date: 20120319
  Transmission Date: 20120608
  Serious: Yes (Hospitalization)
  Sender: FDA-Public Use
  Company Number: PHHY2012CH026620

PATIENT
  Sex: Female

DRUGS (2)
  1. CLOZAPINE [Suspect]
     Dosage: 500 MG DAILY
  2. CLOZAPINE [Suspect]
     Dosage: 200 MG DAILY

REACTIONS (1)
  - ENDOMETRIAL CANCER [None]
